FAERS Safety Report 15099444 (Version 1)
Quarter: 2018Q2

REPORT INFORMATION
  Report Type: Spontaneous
  Country: US (occurrence: US)
  Receive Date: 20180611
  Receipt Date: 20180611
  Transmission Date: 20180711
  Serious: Yes (Other)
  Sender: FDA-Public Use
  Company Number: None

PATIENT
  Age: 51 Year
  Sex: Female
  Weight: 99.79 kg

DRUGS (1)
  1. REMICADE [Suspect]
     Active Substance: INFLIXIMAB
     Indication: CROHN^S DISEASE
     Dosage: EVERY 8 WEEKS
     Route: 042
     Dates: start: 20161221

REACTIONS (2)
  - Infusion related reaction [None]
  - Muscle spasms [None]

NARRATIVE: CASE EVENT DATE: 20180604
